FAERS Safety Report 4622579-7 (Version None)
Quarter: 2005Q2

REPORT INFORMATION
  Report Type: 
  Country: None (occurrence: None)
  Receive Date: 20050317
  Receipt Date: 20041213
  Transmission Date: 20051028
  Serious: Yes (Other)
  Sender: FDA-Public Use
  Company Number: PHEH2004US11279

PATIENT
  Age: 70 Year
  Sex: Female
  Weight: 63 kg

DRUGS (6)
  1. TRILEPTAL [Suspect]
     Dosage: 450 MG, BID, ORAL
     Route: 048
     Dates: start: 20040129, end: 20040308
  2. NEURONTIN [Suspect]
     Indication: VASCULITIS
  3. AMITRIPTYLINE HCL [Concomitant]
  4. ATORVASTATIN CALCIUM [Concomitant]
  5. SYNTHROID [Concomitant]
  6. METHOTREXATE [Concomitant]

REACTIONS (3)
  - DIZZINESS [None]
  - FALL [None]
  - SYNCOPE [None]
